FAERS Safety Report 15867418 (Version 2)
Quarter: 2019Q1

REPORT INFORMATION
  Report Type: Spontaneous
  Country: US (occurrence: US)
  Receive Date: 20190125
  Receipt Date: 20190214
  Transmission Date: 20190417
  Serious: No
  Sender: FDA-Public Use
  Company Number: US-BEH-2019098800

PATIENT
  Age: 38 Year
  Sex: Female

DRUGS (4)
  1. HIZENTRA [Suspect]
     Active Substance: HUMAN IMMUNOGLOBULIN G
     Indication: HYPERGAMMAGLOBULINAEMIA
     Dosage: 7 G, QW
     Route: 058
     Dates: start: 20170920
  2. HIZENTRA [Suspect]
     Active Substance: HUMAN IMMUNOGLOBULIN G
     Dosage: 7 G, TOT
     Route: 058
     Dates: start: 20190120, end: 20190120
  3. HIZENTRA [Suspect]
     Active Substance: HUMAN IMMUNOGLOBULIN G
     Dosage: 7 G, TOT
     Route: 058
     Dates: start: 20190106, end: 20190106
  4. HIZENTRA [Suspect]
     Active Substance: HUMAN IMMUNOGLOBULIN G
     Dosage: 7 G, TOT
     Route: 058
     Dates: start: 20190113, end: 20190113

REACTIONS (6)
  - Erythema [Unknown]
  - Erythema [Unknown]
  - Contusion [Unknown]
  - Contusion [Unknown]
  - Malaise [Unknown]
  - Infection [Recovered/Resolved]

NARRATIVE: CASE EVENT DATE: 201901
